FAERS Safety Report 5509101-8 (Version None)
Quarter: 2007Q4

REPORT INFORMATION
  Report Type: 
  Country: None (occurrence: None)
  Receive Date: 20071026
  Receipt Date: 20070716
  Transmission Date: 20080405
  Serious: Yes (Life-Threatening, Hospitalization)
  Sender: FDA-Public Use
  Company Number: CLOF-10606

PATIENT
  Age: 19 Year
  Sex: Male
  Weight: 74.6 kg

DRUGS (26)
  1. CLOLAR [Suspect]
     Indication: ACUTE MYELOID LEUKAEMIA RECURRENT
     Dosage: 40 MG/M2 QD X 5 IV
     Route: 042
     Dates: start: 20070628, end: 20070702
  2. CYTARABINE [Suspect]
     Indication: ACUTE MYELOID LEUKAEMIA RECURRENT
     Dates: start: 20070625, end: 20070625
  3. CYTARABINE [Suspect]
     Indication: ACUTE MYELOID LEUKAEMIA RECURRENT
     Dosage: 1000 MG/M2 QOD IV
     Route: 042
     Dates: start: 20070627, end: 20070702
  4. AMBISOME [Suspect]
     Indication: DRUG USE FOR UNKNOWN INDICATION
  5. ACETAMINOPHEN [Concomitant]
  6. ACYCLOVIR [Concomitant]
  7. CEPHALEXIN [Concomitant]
  8. DEXAMETHASONE TAB [Concomitant]
  9. DIPHENHYDRAMINE HCL [Concomitant]
  10. DRONABINOL [Concomitant]
  11. FLUCONAZOLE [Concomitant]
  12. HEPARIN [Concomitant]
  13. HYDROXYPROPYL [Concomitant]
  14. HYDROXYZINE [Concomitant]
  15. LANSOPRAZOLE [Concomitant]
  16. LORAZEPAM [Concomitant]
  17. MAGNESIUM [Concomitant]
  18. MEPERIDINE [Concomitant]
  19. METOCLOPRAMIDE [Concomitant]
  20. MORPHINE [Concomitant]
  21. MULTI-VITAMIN [Concomitant]
  22. OCULAR LUBRICANT [Concomitant]
  23. ONDANSETRON [Concomitant]
  24. OXYCODONE HCL [Concomitant]
  25. SULFAMETHOXAZOLE AND TRIMETHOPRIM [Concomitant]
  26. TRAZODONE HCL [Concomitant]

REACTIONS (2)
  - HYPOKALAEMIA [None]
  - INFECTION [None]
